FAERS Safety Report 9293208 (Version 1)
Quarter: 2013Q2

REPORT INFORMATION
  Report Type: Spontaneous
  Country: US (occurrence: US)
  Receive Date: 20130516
  Receipt Date: 20130516
  Transmission Date: 20140414
  Serious: Yes (Other)
  Sender: FDA-Public Use
  Company Number: US-BAXTER-2012BAX023433

PATIENT
  Sex: Male
  Weight: 102.27 kg

DRUGS (10)
  1. GAMMAGARD LIQUID [Suspect]
     Indication: BLOOD IMMUNOGLOBULIN G DECREASED
     Route: 042
     Dates: start: 2011
  2. GAMMAGARD LIQUID [Suspect]
     Indication: BLOOD IMMUNOGLOBULIN A DECREASED
     Route: 042
     Dates: start: 20120413
  3. GAMMAGARD LIQUID [Suspect]
     Indication: BLOOD IMMUNOGLOBULIN M DECREASED
     Route: 042
     Dates: start: 20121017
  4. BYSTOLIC [Concomitant]
     Indication: HYPERTENSION
     Route: 048
  5. DIOVAN [Concomitant]
     Indication: HYPERTENSION
     Route: 048
  6. SEPTRA DS [Concomitant]
     Indication: PRODUCT USED FOR UNKNOWN INDICATION
     Route: 048
  7. DEXAMETHASONE [Concomitant]
     Indication: RED BLOOD CELL COUNT ABNORMAL
     Route: 048
  8. CYMBALTA [Concomitant]
     Indication: PRODUCT USED FOR UNKNOWN INDICATION
     Route: 048
  9. ASPIRIN [Concomitant]
     Indication: PRODUCT USED FOR UNKNOWN INDICATION
     Route: 048
  10. FAMOTIDINE [Concomitant]
     Indication: GASTROOESOPHAGEAL REFLUX DISEASE
     Route: 048

REACTIONS (7)
  - Thrombophlebitis [Recovered/Resolved]
  - Vasodilatation [Recovered/Resolved]
  - Vein disorder [Recovered/Resolved]
  - Pain [Recovered/Resolved]
  - Vascular pain [Recovered/Resolved]
  - Vein discolouration [Recovered/Resolved]
  - Vein disorder [Recovered/Resolved]
